FAERS Safety Report 10911993 (Version 1)
Quarter: 2015Q1

REPORT INFORMATION
  Report Type: Spontaneous
  Country: US (occurrence: None)
  Receive Date: 20150310
  Receipt Date: 20150310
  Transmission Date: 20150721
  Serious: Yes (Disabling)
  Sender: FDA-Public Use
  Company Number: None

PATIENT
  Age: 37 Year
  Sex: Female
  Weight: 57.61 kg

DRUGS (5)
  1. FLONASE [Concomitant]
     Active Substance: FLUTICASONE PROPIONATE
  2. ALEVE [Concomitant]
     Active Substance: NAPROXEN SODIUM
  3. LEVAQUIN [Suspect]
     Active Substance: LEVOFLOXACIN
     Indication: SINUSITIS
     Dosage: 1 PIL
     Route: 048
     Dates: start: 20150217, end: 20150225
  4. TYLENOL [Concomitant]
     Active Substance: ACETAMINOPHEN
  5. ADVIL [Concomitant]
     Active Substance: IBUPROFEN

REACTIONS (9)
  - Arthralgia [None]
  - Myalgia [None]
  - Musculoskeletal pain [None]
  - Neck pain [None]
  - Pain in extremity [None]
  - Tendon pain [None]
  - Mobility decreased [None]
  - Gait disturbance [None]
  - Muscular weakness [None]

NARRATIVE: CASE EVENT DATE: 20150225
